FAERS Safety Report 4768113-2 (Version None)
Quarter: 2005Q3

REPORT INFORMATION
  Report Type: 
  Country: None (occurrence: None)
  Receive Date: 20050912
  Receipt Date: 20050912
  Transmission Date: 20060218
  Serious: Yes (Life-Threatening, Disabling)
  Sender: FDA-Public Use
  Company Number: None

PATIENT
  Age: 40 Year
  Sex: Male

DRUGS (1)
  1. LEVAQUIN [Suspect]
     Indication: PNEUMONIA
     Dosage: 500 QDAILY PO
     Route: 048
     Dates: start: 20050906, end: 20050909

REACTIONS (10)
  - ANXIETY [None]
  - CENTRAL NERVOUS SYSTEM STIMULATION [None]
  - DYSGEUSIA [None]
  - FEELING ABNORMAL [None]
  - HYPERHIDROSIS [None]
  - INSOMNIA [None]
  - NERVOUSNESS [None]
  - PAROSMIA [None]
  - THINKING ABNORMAL [None]
  - WEIGHT DECREASED [None]
